FAERS Safety Report 13301537 (Version 3)
Quarter: 2017Q2

REPORT INFORMATION
  Report Type: Report from Study
  Country: US (occurrence: US)
  Receive Date: 20170307
  Receipt Date: 20170412
  Transmission Date: 20170830
  Serious: Yes (Death, Hospitalization, Other)
  Sender: FDA-Public Use
  Company Number: US-ARIAD-2017US007664

PATIENT
  Age: 62 Year
  Sex: Male

DRUGS (2)
  1. ICLUSIG [Suspect]
     Active Substance: PONATINIB
     Dosage: 45 MG, QD
     Route: 048
  2. ICLUSIG [Suspect]
     Active Substance: PONATINIB
     Indication: CHRONIC MYELOID LEUKAEMIA RECURRENT
     Dosage: 45 MG, QD
     Route: 048
     Dates: start: 20170112

REACTIONS (4)
  - Transfusion [Unknown]
  - Dyspnoea [Not Recovered/Not Resolved]
  - Platelet transfusion [Unknown]
  - Death [Fatal]

NARRATIVE: CASE EVENT DATE: 20170225
